FAERS Safety Report 4799222-X (Version None)
Quarter: 2005Q4

REPORT INFORMATION
  Report Type: 
  Country: None (occurrence: None)
  Receive Date: 20051013
  Receipt Date: 20050927
  Transmission Date: 20060501
  Serious: Yes (Other)
  Sender: FDA-Public Use
  Company Number: DE-2005-020278

PATIENT
  Sex: 0

DRUGS (2)
  1. ULTRAVIST 370 [Suspect]
     Indication: ARTERIOGRAM CORONARY
     Dosage: 1 DOSE
     Dates: start: 20050901
  2. NITRO PREPARATION [Concomitant]

REACTIONS (4)
  - ARTERIOSPASM CORONARY [None]
  - BLOOD PRESSURE DECREASED [None]
  - CARDIAC PROCEDURE COMPLICATION [None]
  - CARDIOVASCULAR DISORDER [None]
